FAERS Safety Report 20547821 (Version 3)
Quarter: 2022Q1

REPORT INFORMATION
  Report Type: Spontaneous
  Country: US (occurrence: US)
  Receive Date: 20220303
  Receipt Date: 20220311
  Transmission Date: 20220423
  Serious: Yes (Other)
  Sender: FDA-Public Use
  Company Number: US-BAYER-2022A027047

PATIENT
  Age: 14 Year
  Sex: Male

DRUGS (5)
  1. KOVALTRY [Suspect]
     Active Substance: ANTIHEMOPHILIC FACTOR, HUMAN RECOMBINANT
     Dosage: 1750 IU
  2. KOVALTRY [Suspect]
     Active Substance: ANTIHEMOPHILIC FACTOR, HUMAN RECOMBINANT
     Dosage: 1 DF, FOR THE RIGHT THIGH BLEED TREATMENT
     Dates: start: 20220220, end: 20220220
  3. KOVALTRY [Suspect]
     Active Substance: ANTIHEMOPHILIC FACTOR, HUMAN RECOMBINANT
     Dosage: 1 DF, BID, FOR THE RIGHT THIGH BLEED TREATMENT
     Dates: start: 20220222, end: 20220222
  4. KOVALTRY [Suspect]
     Active Substance: ANTIHEMOPHILIC FACTOR, HUMAN RECOMBINANT
     Dosage: 1 DF, BID, FOR THE RIGHT THIGH BLEED TREATMENT
     Dates: start: 20220223, end: 20220223
  5. KOVALTRY [Suspect]
     Active Substance: ANTIHEMOPHILIC FACTOR, HUMAN RECOMBINANT
     Dosage: 1 DF, QD, FOR THE RIGHT THIGH BLEED TREATMENT
     Dates: start: 20220304

REACTIONS (4)
  - Muscle haemorrhage [Not Recovered/Not Resolved]
  - Pain in extremity [None]
  - Peripheral swelling [None]
  - Musculoskeletal stiffness [None]

NARRATIVE: CASE EVENT DATE: 20220220
